FAERS Safety Report 4477335-X (Version None)
Quarter: 2004Q4

REPORT INFORMATION
  Report Type: 
  Country: None (occurrence: None)
  Receive Date: 20041018
  Receipt Date: 20041007
  Transmission Date: 20050328
  Serious: Yes (Hospitalization, Other)
  Sender: FDA-Public Use
  Company Number: US-JNJFOC-20041002801

PATIENT
  Age: 31 Year
  Sex: Female
  Weight: 57.15 kg

DRUGS (9)
  1. DURAGESIC [Suspect]
     Route: 062
  2. DURAGESIC [Suspect]
     Route: 062
  3. DURAGESIC [Suspect]
     Route: 062
  4. DURAGESIC [Suspect]
     Route: 062
  5. DURAGESIC [Suspect]
     Route: 062
  6. PERCOCET [Concomitant]
     Route: 049
  7. PERCOCET [Concomitant]
     Dosage: 2-4 PER DAY, AS NEEDED
     Route: 049
  8. MARIJUANA [Concomitant]
     Indication: NAUSEA
     Route: 055
  9. HYDROXYZINE [Concomitant]
     Indication: NAUSEA
     Route: 049

REACTIONS (5)
  - CAESAREAN SECTION [None]
  - DRUG EXPOSURE DURING PREGNANCY [None]
  - DRUG WITHDRAWAL SYNDROME [None]
  - FOETAL GROWTH RETARDATION [None]
  - WEIGHT DECREASED [None]
